FAERS Safety Report 7423682-9 (Version None)
Quarter: 2011Q2

REPORT INFORMATION
  Report Type: 
  Country: None (occurrence: None)
  Receive Date: 20110419
  Receipt Date: 20110413
  Transmission Date: 20111010
  Serious: Yes (Other)
  Sender: FDA-Public Use
  Company Number: US-B.I. PHARMACEUTICALS,INC./RIDGEFIELD-2010-BP-14402PF

PATIENT
  Sex: Female
  Weight: 80.73 kg

DRUGS (7)
  1. PREMARIN [Suspect]
     Indication: HYSTERECTOMY
     Dosage: 1.25 MG
     Route: 048
     Dates: start: 19950101
  2. LEVOXYL [Suspect]
     Indication: HYPOTHYROIDISM
     Dosage: 100 MCG
     Route: 048
     Dates: start: 19940101
  3. FISH OIL [Concomitant]
     Dosage: 2400 MG
  4. LIPITOR [Suspect]
     Indication: BLOOD CHOLESTEROL INCREASED
     Dosage: 20 MG
     Route: 048
  5. SPIRIVA [Suspect]
     Indication: CHRONIC OBSTRUCTIVE PULMONARY DISEASE
     Dosage: 18 MCG
  6. COMBIVENT [Suspect]
     Indication: CHRONIC OBSTRUCTIVE PULMONARY DISEASE
  7. LIPITOR [Suspect]
     Dosage: 40 MG
     Route: 048
     Dates: start: 20061004

REACTIONS (5)
  - ABDOMINAL DISCOMFORT [None]
  - DYSPNOEA [None]
  - CARDIAC PACEMAKER INSERTION [None]
  - BLOOD PRESSURE ABNORMAL [None]
  - HEART VALVE INCOMPETENCE [None]
